FAERS Safety Report 20600904 (Version 1)
Quarter: 2022Q1

REPORT INFORMATION
  Report Type: Report from Study
  Country: CO (occurrence: CO)
  Receive Date: 20220316
  Receipt Date: 20220316
  Transmission Date: 20220423
  Serious: Yes (Other)
  Sender: FDA-Public Use
  Company Number: CO-JNJFOC-20220320813

PATIENT
  Age: 75 Year
  Sex: Female
  Weight: 47 kg

DRUGS (2)
  1. SIMPONI [Suspect]
     Active Substance: GOLIMUMAB
     Indication: Rheumatoid arthritis
     Route: 042
     Dates: start: 20210814
  2. PREGABALIN [Suspect]
     Active Substance: PREGABALIN
     Indication: Product used for unknown indication
     Route: 065

REACTIONS (4)
  - Asphyxia [Not Recovered/Not Resolved]
  - Bone pain [Not Recovered/Not Resolved]
  - Vomiting [Not Recovered/Not Resolved]
  - Herpes virus infection [Not Recovered/Not Resolved]

NARRATIVE: CASE EVENT DATE: 20220207
